FAERS Safety Report 4411766-9 (Version None)
Quarter: 2004Q3

REPORT INFORMATION
  Report Type: 
  Country: None (occurrence: None)
  Receive Date: 20040729
  Receipt Date: 20040729
  Transmission Date: 20050211
  Serious: Yes (Life-Threatening)
  Sender: FDA-Public Use
  Company Number: None

PATIENT
  Age: 84 Year
  Sex: Female

DRUGS (2)
  1. VITAMIN K, 10 MG INJ ABBOTT [Suspect]
     Indication: SURGERY
     Dosage: 10 MG ONCE IV
     Route: 042
     Dates: start: 20040412
  2. MORPHINE [Suspect]
     Dosage: 2 MG IV
     Route: 042

REACTIONS (4)
  - CARDIO-RESPIRATORY ARREST [None]
  - ERYTHEMA [None]
  - LOSS OF CONSCIOUSNESS [None]
  - MUSCULOSKELETAL STIFFNESS [None]
